FAERS Safety Report 11387635 (Version 4)
Quarter: 2015Q3

REPORT INFORMATION
  Report Type: Spontaneous
  Country: ES (occurrence: ES)
  Receive Date: 20150817
  Receipt Date: 20150929
  Transmission Date: 20151125
  Serious: Yes (Death, Life-Threatening, Hospitalization, Disabling)
  Sender: FDA-Public Use
  Company Number: ES-ASTRAZENECA-2015SE78873

PATIENT
  Age: 77 Year
  Sex: Female

DRUGS (7)
  1. FULVESTRANT [Suspect]
     Active Substance: FULVESTRANT
     Indication: BREAST CANCER METASTATIC
     Route: 030
     Dates: start: 20150426
  2. ANASTROZOLE. [Suspect]
     Active Substance: ANASTROZOLE
     Indication: BREAST CANCER METASTATIC
     Dosage: TWO TIMES A DAY
     Route: 048
     Dates: start: 20150526, end: 20150722
  3. BROMAZEPAM [Concomitant]
     Active Substance: BROMAZEPAM
  4. ESCITALOPRAM [Concomitant]
     Active Substance: ESCITALOPRAM OXALATE
  5. FULVESTRANT [Suspect]
     Active Substance: FULVESTRANT
     Indication: BREAST CANCER METASTATIC
     Dosage: 500 MG DAY 1 AND 15 OF CYCLE 1, DAY 1 OF CYCLE 2
     Route: 030
  6. CALCIUM CARBONATE. [Concomitant]
     Active Substance: CALCIUM CARBONATE
  7. FRAXIPARINE FORTE [Concomitant]

REACTIONS (9)
  - Septic shock [Fatal]
  - Confusional state [Fatal]
  - Head injury [Unknown]
  - Neutropenia [Fatal]
  - Language disorder [Unknown]
  - Fall [Unknown]
  - Diarrhoea [Not Recovered/Not Resolved]
  - Acute respiratory failure [Unknown]
  - Hypotension [Unknown]

NARRATIVE: CASE EVENT DATE: 20150724
